FAERS Safety Report 4715639-3 (Version None)
Quarter: 2005Q3

REPORT INFORMATION
  Report Type: 
  Country: None (occurrence: None)
  Receive Date: 20050713
  Receipt Date: 20050621
  Transmission Date: 20060218
  Serious: Yes (Death)
  Sender: FDA-Public Use
  Company Number: 2005-DE-02361GD

PATIENT

DRUGS (1)
  1. MIRTAZAPINE [Suspect]

REACTIONS (1)
  - COMPLETED SUICIDE [None]
